FAERS Safety Report 4464671-6 (Version None)
Quarter: 2004Q3

REPORT INFORMATION
  Report Type: 
  Country: None (occurrence: None)
  Receive Date: 20040929
  Receipt Date: 20040913
  Transmission Date: 20050211
  Serious: Yes (Death)
  Sender: FDA-Public Use
  Company Number: FR_040904784

PATIENT
  Age: 72 Year
  Sex: Male

DRUGS (5)
  1. ZYPREXA [Suspect]
     Indication: BIPOLAR I DISORDER
     Dosage: 10 MG /1 DAY
     Dates: start: 20020101
  2. VALPROATE SODIUM [Concomitant]
  3. ANAFRANIL [Concomitant]
  4. GLUCOPHAGE [Concomitant]
  5. DAMICRON (GLICLAZIDE) [Concomitant]

REACTIONS (1)
  - DEATH [None]
